FAERS Safety Report 25008446 (Version 1)
Quarter: 2025Q1

REPORT INFORMATION
  Report Type: Spontaneous
  Country: US (occurrence: None)
  Receive Date: 20250224
  Receipt Date: 20250224
  Transmission Date: 20250409
  Serious: Yes (Death, Hospitalization)
  Sender: FDA-CTU
  Company Number: None

PATIENT
  Age: 84 Year

DRUGS (11)
  1. PIRFENIDONE [Suspect]
     Active Substance: PIRFENIDONE
     Indication: Idiopathic pulmonary fibrosis
     Dosage: 801MG TID ORAL
     Route: 048
     Dates: start: 20160601, end: 20240511
  2. DUONEB [Concomitant]
     Active Substance: ALBUTEROL SULFATE\IPRATROPIUM BROMIDE
  3. LIDOCAINE PATCH [Concomitant]
     Active Substance: LIDOCAINE
  4. Breyna HFA [Concomitant]
  5. TESSALON [Concomitant]
     Active Substance: BENZONATATE
  6. AMITIZA [Concomitant]
     Active Substance: LUBIPROSTONE
  7. LACTULOSE [Concomitant]
     Active Substance: LACTULOSE
  8. CLEARLAX [Concomitant]
     Active Substance: POLYETHYLENE GLYCOL 3350
  9. ALBUTEROL SULFATE [Concomitant]
     Active Substance: ALBUTEROL SULFATE
  10. MAGNESIUM OXIDE [Concomitant]
     Active Substance: MAGNESIUM OXIDE
  11. TYLENOL [Concomitant]
     Active Substance: ACETAMINOPHEN

REACTIONS (3)
  - Atrial fibrillation [None]
  - Acute respiratory failure [None]
  - Thrombocytopenia [None]

NARRATIVE: CASE EVENT DATE: 20240501
